FAERS Safety Report 9885490 (Version 3)
Quarter: 2014Q4

REPORT INFORMATION
  Report Type: Spontaneous
  Country: FR (occurrence: FR)
  Receive Date: 20140210
  Receipt Date: 20141013
  Transmission Date: 20150529
  Serious: Yes (Hospitalization, Other)
  Sender: FDA-Public Use
  Company Number: FR-PFIZER INC-2014032654

PATIENT
  Age: 51 Year
  Sex: Female

DRUGS (3)
  1. XANAX [Suspect]
     Active Substance: ALPRAZOLAM
     Dosage: 0.5 MG, 4X/DAY
  2. XANAX [Suspect]
     Active Substance: ALPRAZOLAM
     Dosage: 0.5 MG, 3 TO 4 TIMES
  3. XANAX [Suspect]
     Active Substance: ALPRAZOLAM
     Indication: TACHYCARDIA
     Dosage: UNSPECIFIED DAILY DOSE (PROGRESSIVE INCREASE IN DAILY DOSE)
     Dates: start: 2000

REACTIONS (24)
  - Drug dependence [Unknown]
  - Amyotrophy [Unknown]
  - Cold sweat [Unknown]
  - Dyskinesia [Unknown]
  - Insomnia [Unknown]
  - Asthenia [Unknown]
  - Tremor [Unknown]
  - Tachycardia [Unknown]
  - Muscular weakness [Unknown]
  - Headache [Unknown]
  - Loss of libido [Unknown]
  - Pain in extremity [Unknown]
  - Dependence [Unknown]
  - Malaise [Unknown]
  - Mood altered [Unknown]
  - Aggression [Unknown]
  - Drug withdrawal syndrome [Unknown]
  - Tetany [Unknown]
  - Feeling cold [Unknown]
  - Diplopia [Unknown]
  - Extrasystoles [Unknown]
  - Fatigue [Unknown]
  - Feeling abnormal [Unknown]
  - Crying [Unknown]
